FAERS Safety Report 5449513-4 (Version None)
Quarter: 2007Q3

REPORT INFORMATION
  Report Type: 
  Country: None (occurrence: None)
  Receive Date: 20070907
  Receipt Date: 20070829
  Transmission Date: 20080115
  Serious: Yes (Other)
  Sender: FDA-Public Use
  Company Number: CHPA2007US09240

PATIENT
  Age: 90 Year
  Sex: Female
  Weight: 61.7 kg

DRUGS (3)
  1. BENEFIBER FIBER SUPLEMENT SUGAR FREE (NCH) (GUAR GUM) POWDER [Suspect]
     Indication: NUTRITIONAL SUPPORT
     Dosage: 2 TSP, BID, ORAL
     Route: 048
     Dates: start: 20070815
  2. LASIX [Concomitant]
  3. POTASSIUM CHLORIDE [Concomitant]

REACTIONS (2)
  - CONSTIPATION [None]
  - OEDEMA PERIPHERAL [None]
